FAERS Safety Report 5315295-X (Version None)
Quarter: 2007Q2

REPORT INFORMATION
  Report Type: 
  Country: None (occurrence: None)
  Receive Date: 20070427
  Receipt Date: 20070418
  Transmission Date: 20071010
  Serious: Yes (Hospitalization)
  Sender: FDA-Public Use
  Company Number: 163-21880-07030776

PATIENT
  Age: 60 Year
  Sex: Male

DRUGS (2)
  1. REVLIMID [Suspect]
     Indication: MULTIPLE MYELOMA
     Dosage: 25 MG, 1 IN 1 D, ORAL ; QD FOR 21 DAYS ORAL
     Route: 048
     Dates: start: 20061109, end: 20070305
  2. REVLIMID [Suspect]
     Indication: MULTIPLE MYELOMA
     Dosage: 25 MG, 1 IN 1 D, ORAL ; QD FOR 21 DAYS ORAL
     Route: 048
     Dates: start: 20070315

REACTIONS (3)
  - BLOOD COUNT ABNORMAL [None]
  - PNEUMONIA [None]
  - VIRAL INFECTION [None]
